FAERS Safety Report 4752377-5 (Version None)
Quarter: 2005Q3

REPORT INFORMATION
  Report Type: 
  Country: None (occurrence: None)
  Receive Date: 20050823
  Receipt Date: 20050809
  Transmission Date: 20060218
  Serious: Yes (Hospitalization)
  Sender: FDA-Public Use
  Company Number: FR_040904722

PATIENT
  Age: 31 Year
  Sex: Female
  Weight: 157 kg

DRUGS (13)
  1. TOBRAMYCIN SULFATE [Suspect]
     Indication: INFECTION
     Dosage: 175 MG DAY
     Dates: start: 20040524, end: 20040527
  2. TAZOCILLINE [Concomitant]
  3. PROGRAF [Concomitant]
  4. CELLCEPT [Concomitant]
  5. KARDEGIC (LYSINE ASPIRIN) [Concomitant]
  6. LEXOMIL (BROMAZEPAM) [Concomitant]
  7. PAROXETINE HYDROCHLORIDE [Concomitant]
  8. SERETIDE [Concomitant]
  9. IDEOS [Concomitant]
  10. MOTILIUM (DOMPERIDONE MALEATE) [Concomitant]
  11. RHINOCORT [Concomitant]
  12. CREON [Concomitant]
  13. ZITHROMAX [Concomitant]

REACTIONS (8)
  - ALANINE AMINOTRANSFERASE INCREASED [None]
  - ASPARTATE AMINOTRANSFERASE INCREASED [None]
  - ASTHENIA [None]
  - BLOOD ALKALINE PHOSPHATASE INCREASED [None]
  - BLOOD BILIRUBIN INCREASED [None]
  - DIARRHOEA [None]
  - GAMMA-GLUTAMYLTRANSFERASE INCREASED [None]
  - HEPATOCELLULAR DAMAGE [None]
